FAERS Safety Report 12908608 (Version 3)
Quarter: 2024Q1

REPORT INFORMATION
  Report Type: Spontaneous
  Country: US (occurrence: US)
  Receive Date: 20161103
  Receipt Date: 20240226
  Transmission Date: 20240410
  Serious: No
  Sender: FDA-Public Use
  Company Number: US-IMPAX LABORATORIES, INC-2016-IPXL-01353

PATIENT
  Age: 76 Year
  Sex: Female
  Weight: 95 kg

DRUGS (9)
  1. RYTARY [Suspect]
     Active Substance: CARBIDOPA\LEVODOPA
     Indication: Parkinson^s disease
     Dosage: (61.25/245) MG ONE CAPSULE, THREE TIMES DAILY
     Route: 048
     Dates: start: 201605, end: 20200113
  2. RYTARY [Suspect]
     Active Substance: CARBIDOPA\LEVODOPA
     Dosage: 1 CAPSULES, 3 /DAY
     Route: 048
     Dates: end: 20210117
  3. RYTARY [Suspect]
     Active Substance: CARBIDOPA\LEVODOPA
     Dosage: 23.75-95MG, 1 CAPSULE BY MOUTH THREE TIMES A DAY (ALONG WITH RYTARY 36.25-145MG 2 CAPSULES THREE TIM
     Route: 048
  4. RYTARY [Suspect]
     Active Substance: CARBIDOPA\LEVODOPA
     Dosage: 23.75-95 MG, TAKE 2 CAPSULES BY MOUTH 3 TIMES A DAY
     Route: 048
     Dates: start: 20230217
  5. RYTARY [Suspect]
     Active Substance: CARBIDOPA\LEVODOPA
     Dosage: 36.25-145MG TAKE 2 CAPSULES BY MOUTH 4 TIMES DAILY
     Route: 048
     Dates: start: 20230620
  6. RYTARY [Suspect]
     Active Substance: CARBIDOPA\LEVODOPA
     Dosage: 36.25-145MG-2 CAPSULES THREE TIMES A DAY AND 1 CAPSULE AT 10AM. 23.75-95MG- 1 CAPSULE THREE TIMES A
     Route: 048
     Dates: start: 20230922
  7. SEROQUEL [Concomitant]
     Active Substance: QUETIAPINE FUMARATE
     Indication: Sleep disorder
     Dosage: 50 MG, 1 TABLET AT BEDTIME
     Route: 065
     Dates: start: 20150519
  8. AZILECT [Concomitant]
     Active Substance: RASAGILINE MESYLATE
     Indication: Product used for unknown indication
     Dosage: 1 MG, DAILY
     Route: 065
     Dates: start: 201507
  9. VITAMINS [Concomitant]
     Active Substance: VITAMINS
     Indication: Product used for unknown indication
     Dosage: UNK
     Route: 065

REACTIONS (5)
  - Heart rate increased [Recovered/Resolved]
  - Energy increased [Recovered/Resolved]
  - Blood pressure decreased [Unknown]
  - Insomnia [Recovered/Resolved]
  - Extra dose administered [Recovered/Resolved]

NARRATIVE: CASE EVENT DATE: 20160929
